FAERS Safety Report 6046430-6 (Version None)
Quarter: 2009Q1

REPORT INFORMATION
  Report Type: 
  Country: None (occurrence: None)
  Receive Date: 20090121
  Receipt Date: 20090121
  Transmission Date: 20090719
  Serious: No
  Sender: FDA-Public Use
  Company Number: None

PATIENT
  Age: 54 Year
  Sex: Female
  Weight: 88.4514 kg

DRUGS (1)
  1. AZASITE [Suspect]
     Indication: DRY EYE
     Dosage: 1 DROP TWO TIMES A DAY OPHTHALMIC ONE DOSAGE
     Route: 047

REACTIONS (2)
  - INSTILLATION SITE IRRITATION [None]
  - SELF-MEDICATION [None]
